FAERS Safety Report 4786560-X (Version None)
Quarter: 2005Q3

REPORT INFORMATION
  Report Type: 
  Country: None (occurrence: None)
  Receive Date: 20050927
  Receipt Date: 20050628
  Transmission Date: 20060218
  Serious: No
  Sender: FDA-Public Use
  Company Number: USA0507101864

PATIENT
  Age: 30 Year
  Sex: Male

DRUGS (1)
  1. STRATTERA [Suspect]
     Dates: end: 20050628

REACTIONS (3)
  - CHROMATURIA [None]
  - DYSURIA [None]
  - ERECTILE DYSFUNCTION [None]
